FAERS Safety Report 5424762-X (Version None)
Quarter: 2007Q3

REPORT INFORMATION
  Report Type: 
  Country: None (occurrence: None)
  Receive Date: 20070822
  Receipt Date: 20070813
  Transmission Date: 20080115
  Serious: Yes (Hospitalization)
  Sender: FDA-Public Use
  Company Number: 2007RL000365

PATIENT
  Age: 65 Year
  Sex: Male
  Weight: 92.5338 kg

DRUGS (5)
  1. RYTHMOL [Suspect]
     Indication: ATRIAL FIBRILLATION
     Dosage: 225 MG; BID; PO
     Route: 048
     Dates: start: 20050101, end: 20050101
  2. RYTHMOL [Suspect]
     Indication: ATRIAL FIBRILLATION
     Dosage: 150 MG; PO
     Route: 048
     Dates: start: 19920101, end: 20050101
  3. RYTHMOL [Suspect]
     Indication: ATRIAL FIBRILLATION
     Dosage: 150 MG; PO
     Route: 048
     Dates: start: 20050101
  4. ATENOLOL [Concomitant]
  5. OMEPRAZOLE [Concomitant]

REACTIONS (1)
  - TACHYCARDIA [None]
